FAERS Safety Report 4783947-6 (Version None)
Quarter: 2005Q3

REPORT INFORMATION
  Report Type: 
  Country: None (occurrence: None)
  Receive Date: 20050927
  Receipt Date: 20050725
  Transmission Date: 20060218
  Serious: No
  Sender: FDA-Public Use
  Company Number: USA0507104104

PATIENT
  Age: 59 Year
  Sex: Female

DRUGS (5)
  1. STRATTERA [Suspect]
     Dosage: 40 MG/2 DAY
     Dates: start: 20050322, end: 20050720
  2. LASIX [Concomitant]
  3. KCL (POTASSIUM CHLORIDE) [Concomitant]
  4. MOBIC [Concomitant]
  5. CELEXA [Concomitant]

REACTIONS (3)
  - FALL [None]
  - JOINT SPRAIN [None]
  - ORTHOSTATIC HYPOTENSION [None]
